FAERS Safety Report 6734155-0 (Version None)
Quarter: 2010Q2

REPORT INFORMATION
  Report Type: 
  Country: None (occurrence: None)
  Receive Date: 20100520
  Receipt Date: 20100512
  Transmission Date: 20101027
  Serious: Yes (Hospitalization)
  Sender: FDA-Public Use
  Company Number: GXKR2010PL05391

PATIENT
  Age: 47 Year
  Sex: Female

DRUGS (5)
  1. TACROLIMUS (NGX) [Suspect]
     Indication: PROPHYLAXIS AGAINST TRANSPLANT REJECTION
     Dosage: 12 MG/DAY
     Route: 048
  2. MYCOPHENOLATE MOFETIL (NGX) [Suspect]
     Indication: PROPHYLAXIS AGAINST TRANSPLANT REJECTION
     Dosage: 1000 MG/DAY
     Route: 048
  3. MYCOPHENOLATE MOFETIL (NGX) [Suspect]
     Dosage: 2000 MG/DAY
     Route: 048
  4. ENCORTON [Concomitant]
     Indication: HYPERTENSION
     Dosage: 5 MG/DAY
     Route: 065
  5. ENCORTON [Concomitant]
     Dosage: 10 MG/DAY
     Route: 065

REACTIONS (8)
  - BLASTOMYCOSIS [None]
  - HEADACHE [None]
  - HERPES VIRUS INFECTION [None]
  - HERPES ZOSTER [None]
  - MENOMETRORRHAGIA [None]
  - PYREXIA [None]
  - RASH [None]
  - TREMOR [None]
